FAERS Safety Report 9716830 (Version 1)
Quarter: 2013Q4

REPORT INFORMATION
  Report Type: Spontaneous
  Country: DE (occurrence: None)
  Receive Date: 20131125
  Receipt Date: 20131125
  Transmission Date: 20140711
  Serious: Yes (Other)
  Sender: FDA-Public Use
  Company Number: AUR-APL-2013-09856

PATIENT
  Age: 78 Year
  Sex: Male

DRUGS (2)
  1. TERBINAFINE [Suspect]
     Indication: FUNGAL INFECTION
     Dosage: 250 MG  (250 MG, 1 IN 1 D), ORAL
     Route: 048
     Dates: start: 201307
  2. VOTUM [Suspect]
     Indication: HYPERTENSION
     Dosage: (20 MG),  ORAL
     Route: 048
     Dates: start: 20131011, end: 2013

REACTIONS (1)
  - Venous thrombosis limb [None]
